FAERS Safety Report 9942441 (Version 1)
Quarter: 2014Q1

REPORT INFORMATION
  Report Type: Spontaneous
  Country: NL (occurrence: NL)
  Receive Date: 20140303
  Receipt Date: 20140303
  Transmission Date: 20141002
  Serious: Yes (Other)
  Sender: FDA-Public Use
  Company Number: PHHY2014NL025237

PATIENT
  Sex: 0

DRUGS (1)
  1. GLIVEC [Suspect]
     Dosage: 800 MG, UNK

REACTIONS (4)
  - Osteoporosis [Unknown]
  - Osteoarthritis [Unknown]
  - Arthralgia [Unknown]
  - Back pain [Unknown]
